FAERS Safety Report 25661131 (Version 1)
Quarter: 2025Q3

REPORT INFORMATION
  Report Type: Spontaneous
  Country: US (occurrence: US)
  Receive Date: 20250808
  Receipt Date: 20250808
  Transmission Date: 20251021
  Serious: No
  Sender: PHARMACEUTICAL ASSOC
  Company Number: US-PAIPHARMA-2024-US-066973

PATIENT
  Age: 59 Year
  Sex: Male
  Weight: 64.41 kg

DRUGS (2)
  1. LACTULOSE [Suspect]
     Active Substance: LACTULOSE
     Indication: Constipation
     Route: 048
     Dates: start: 202212, end: 20241215
  2. SENNA S [Suspect]
     Active Substance: DOCUSATE SODIUM\SENNOSIDES
     Dates: start: 2022

REACTIONS (7)
  - Blood glucose increased [Not Recovered/Not Resolved]
  - Abdominal pain upper [Unknown]
  - Drug ineffective [Unknown]
  - Dehydration [Unknown]
  - Blood sodium decreased [Unknown]
  - Abnormal loss of weight [Not Recovered/Not Resolved]
  - Intentional product use issue [Recovered/Resolved]

NARRATIVE: CASE EVENT DATE: 20241124
